FAERS Safety Report 7067524-2 (Version None)
Quarter: 2010Q4

REPORT INFORMATION
  Report Type: 
  Country: None (occurrence: None)
  Receive Date: 20101028
  Receipt Date: 20100331
  Transmission Date: 20110411
  Serious: No
  Sender: FDA-Public Use
  Company Number: US-PFIZER INC-2010014083

PATIENT
  Sex: Female

DRUGS (1)
  1. LOMOTIL [Suspect]
     Indication: DIARRHOEA
     Dosage: UNK

REACTIONS (2)
  - CIRCADIAN RHYTHM SLEEP DISORDER [None]
  - MEMORY IMPAIRMENT [None]
